FAERS Safety Report 5513674-9 (Version None)
Quarter: 2007Q4

REPORT INFORMATION
  Report Type: 
  Country: None (occurrence: None)
  Receive Date: 20071108
  Receipt Date: 20071025
  Transmission Date: 20080405
  Serious: Yes (Death, Other)
  Sender: FDA-Public Use
  Company Number: 2007US002585

PATIENT
  Age: 33 Year
  Sex: Female

DRUGS (6)
  1. AMBISOME [Suspect]
     Indication: BRONCHOPULMONARY ASPERGILLOSIS
  2. AMIKACIN SULFATE [Concomitant]
  3. LEVONORGESTREL [Concomitant]
  4. MEROPENEM (MEROPENEM) [Concomitant]
  5. LANSOPRAZOLE [Concomitant]
  6. ITRACONAZOLE [Concomitant]

REACTIONS (9)
  - ACUTE RESPIRATORY FAILURE [None]
  - ATRIOVENTRICULAR BLOCK COMPLETE [None]
  - BRONCHOPULMONARY ASPERGILLOSIS [None]
  - CARDIO-RESPIRATORY ARREST [None]
  - CARDIOTOXICITY [None]
  - HAEMOPTYSIS [None]
  - HYPOTENSION [None]
  - INFUSION RELATED REACTION [None]
  - PYREXIA [None]
